FAERS Safety Report 9212932 (Version 1)
Quarter: 2013Q2

REPORT INFORMATION
  Report Type: Report from Study
  Country: CA (occurrence: CA)
  Receive Date: 20130405
  Receipt Date: 20130405
  Transmission Date: 20140414
  Serious: Yes (Hospitalization)
  Sender: FDA-Public Use
  Company Number: CA-JNJFOC-20130317870

PATIENT
  Sex: Female
  Weight: 90 kg

DRUGS (5)
  1. REMICADE [Suspect]
     Indication: PSORIASIS
     Route: 042
     Dates: start: 20101025
  2. SYNTHROID [Concomitant]
     Route: 065
  3. FELODIPINE [Concomitant]
     Route: 065
  4. FLUOXETINE [Concomitant]
     Route: 065
  5. ATACAND [Concomitant]
     Route: 065

REACTIONS (2)
  - Parathyroid tumour [Not Recovered/Not Resolved]
  - Hypertension [Not Recovered/Not Resolved]
